FAERS Safety Report 5923044-7 (Version None)
Quarter: 2008Q4

REPORT INFORMATION
  Report Type: 
  Country: None (occurrence: None)
  Receive Date: 20081018
  Receipt Date: 20081006
  Transmission Date: 20090506
  Serious: Yes (Other)
  Sender: FDA-Public Use
  Company Number: US-PFIZER INC-2008084352

PATIENT
  Sex: Female
  Weight: 50.909 kg

DRUGS (5)
  1. LIPITOR [Suspect]
     Indication: BLOOD CHOLESTEROL INCREASED
     Route: 048
     Dates: start: 20081004
  2. PRIMIDONE [Concomitant]
  3. AMLODIPINE BESYLATE AND BENAZEPRIL HCL [Concomitant]
  4. LANTUS [Concomitant]
  5. HUMALOG [Concomitant]

REACTIONS (2)
  - GAIT DISTURBANCE [None]
  - TREMOR [None]
